FAERS Safety Report 13704439 (Version 1)
Quarter: 2017Q2

REPORT INFORMATION
  Report Type: Spontaneous
  Country: US (occurrence: US)
  Receive Date: 20170629
  Receipt Date: 20170629
  Transmission Date: 20170830
  Serious: No
  Sender: FDA-Public Use
  Company Number: None

PATIENT
  Age: 51 Year
  Sex: Female
  Weight: 67.95 kg

DRUGS (8)
  1. BAYER ASPIRIN [Concomitant]
     Active Substance: ASPIRIN
  2. TRILEPTAL [Concomitant]
     Active Substance: OXCARBAZEPINE
  3. LAMICTAL [Concomitant]
     Active Substance: LAMOTRIGINE
  4. DAILY VITAMIN [Concomitant]
     Active Substance: VITAMINS
  5. VITAMIN E [Concomitant]
     Active Substance: .ALPHA.-TOCOPHEROL
  6. IMITREX [Concomitant]
     Active Substance: SUMATRIPTAN SUCCINATE
  7. ZYRTEC [Concomitant]
     Active Substance: CETIRIZINE HYDROCHLORIDE
  8. BENZONATATE. [Suspect]
     Active Substance: BENZONATATE
     Indication: BRONCHITIS
     Dosage: ?          OTHER STRENGTH:MG/MG;QUANTITY:1 CAPSULE(S);?
     Route: 048
     Dates: start: 20170623

REACTIONS (5)
  - Insomnia [None]
  - Cough [None]
  - Fatigue [None]
  - Tachyphrenia [None]
  - Abnormal dreams [None]

NARRATIVE: CASE EVENT DATE: 20170623
